FAERS Safety Report 18001358 (Version 3)
Quarter: 2020Q3

REPORT INFORMATION
  Report Type: Spontaneous
  Country: JP (occurrence: JP)
  Receive Date: 20200709
  Receipt Date: 20200804
  Transmission Date: 20201103
  Serious: Yes (Death, Hospitalization)
  Sender: FDA-Public Use
  Company Number: JP-MYLANLABS-2020M1062363

PATIENT
  Age: 72 Year
  Sex: Female

DRUGS (7)
  1. AZATHIOPRINE. [Suspect]
     Active Substance: AZATHIOPRINE
     Indication: SYSTEMIC LUPUS ERYTHEMATOSUS
     Route: 065
  2. PREDNISOLONE. [Suspect]
     Active Substance: PREDNISOLONE
     Indication: SYSTEMIC LUPUS ERYTHEMATOSUS
     Dosage: 8 MILLIGRAM, QD
     Route: 065
  3. AMPICILLIN AND SULBACTAM [Suspect]
     Active Substance: AMPICILLIN SODIUM\SULBACTAM SODIUM
     Indication: PLEURAL EFFUSION
  4. AMPICILLIN AND SULBACTAM [Suspect]
     Active Substance: AMPICILLIN SODIUM\SULBACTAM SODIUM
     Indication: SALMONELLOSIS
     Route: 042
  5. LEVOFLOXACIN                       /01278903/ [Suspect]
     Active Substance: LEVOFLOXACIN
     Indication: PLEURAL EFFUSION
  6. LEVOFLOXACIN                       /01278903/ [Suspect]
     Active Substance: LEVOFLOXACIN
     Indication: SALMONELLOSIS
     Route: 042
  7. PREDNISOLONE. [Suspect]
     Active Substance: PREDNISOLONE
     Dosage: 45 MILLIGRAM, QD
     Route: 065

REACTIONS (7)
  - Pleural effusion [Not Recovered/Not Resolved]
  - Drug ineffective [Unknown]
  - Respiratory failure [Unknown]
  - Pleurisy [Not Recovered/Not Resolved]
  - Salmonellosis [Not Recovered/Not Resolved]
  - Enterococcal infection [Fatal]
  - Sepsis [Fatal]
